FAERS Safety Report 6050223-3 (Version None)
Quarter: 2009Q1

REPORT INFORMATION
  Report Type: 
  Country: None (occurrence: None)
  Receive Date: 20090121
  Receipt Date: 20090114
  Transmission Date: 20090719
  Serious: Yes (Hospitalization)
  Sender: FDA-Public Use
  Company Number: 2008JP002404

PATIENT
  Age: 87 Year
  Sex: Male
  Weight: 43.6 kg

DRUGS (6)
  1. FUNGUARD (MICAFUNGIN) INJECTION [Suspect]
     Indication: FUNGAL INFECTION
     Dosage: 300 MG, UID/QD, IV DRIP
     Route: 041
     Dates: start: 20080509, end: 20080513
  2. ITRIZOLE (ITRACONAZOLE) INJECTION [Suspect]
     Indication: FUNGAL INFECTION
     Dosage: 200 MG, UID/QD, IV DRIP
     Route: 041
     Dates: start: 20080428, end: 20080508
  3. ROCEPHIN [Suspect]
     Indication: CHRONIC SINUSITIS
     Dosage: 1 G BID, IV DRIP
     Route: 041
     Dates: start: 20080502, end: 20080507
  4. FUNGIZONE (AMPHOTERICIN B) FOR [Suspect]
     Indication: FUNGAL INFECTION
     Dosage: 300 MG, /D
     Dates: start: 20080509
  5. ADALAT [Suspect]
     Indication: HYPERTENSION
     Dosage: 20 MG, BID, ORAL
     Route: 048
  6. DIOVAN [Suspect]
     Indication: HYPERTENSION
     Dosage: 80 MG, UID/QD, ORAL
     Route: 048

REACTIONS (4)
  - CARDIAC FAILURE [None]
  - DRUG INEFFECTIVE [None]
  - OEDEMA PERIPHERAL [None]
  - WEIGHT INCREASED [None]
